FAERS Safety Report 19013001 (Version 1)
Quarter: 2021Q1

REPORT INFORMATION
  Report Type: Spontaneous
  Country: US (occurrence: US)
  Receive Date: 20210316
  Receipt Date: 20210316
  Transmission Date: 20210420
  Serious: Yes (Other)
  Sender: FDA-Public Use
  Company Number: None

PATIENT
  Age: 75 Year
  Sex: Female

DRUGS (6)
  1. QUINAPRIL HCL 20MG MADE BY LUPIN [Suspect]
     Active Substance: QUINAPRIL HYDROCHLORIDE
     Indication: HYPERTENSION
     Dosage: ?          QUANTITY:1 TABLET(S);?
     Route: 048
     Dates: start: 20200302, end: 20200319
  2. ARTIFICIAL KNEE [Concomitant]
  3. MULTIVITAMIN FOR OVER 50 YEARS OLD [Concomitant]
  4. VITAMIN D 2000 IU [Concomitant]
  5. COENZYME Q10 [Concomitant]
     Active Substance: DIETARY SUPPLEMENT\UBIDECARENONE
  6. QUINAPRIL. [Concomitant]
     Active Substance: QUINAPRIL

REACTIONS (3)
  - Nausea [None]
  - Alopecia [None]
  - Product substitution issue [None]

NARRATIVE: CASE EVENT DATE: 20201201
